FAERS Safety Report 8399059-9 (Version None)
Quarter: 2012Q2

REPORT INFORMATION
  Report Type: 
  Country: None (occurrence: None)
  Receive Date: 20120531
  Receipt Date: 20120517
  Transmission Date: 20120825
  Serious: Yes (Hospitalization)
  Sender: FDA-Public Use
  Company Number: KR-COVIDIEN/TYCO HEALTHCARE/MALLINCKRODT-T201202423

PATIENT
  Sex: Male
  Weight: 53.2 kg

DRUGS (20)
  1. EXALGO [Suspect]
     Dosage: 4 MG, QD
     Route: 048
     Dates: start: 20120329, end: 20120509
  2. TRANEXAMIC ACID [Concomitant]
     Indication: HAEMOPTYSIS
     Dosage: 250 MG, UNK
     Route: 048
     Dates: start: 20120429, end: 20120502
  3. AMITRIPTYLINE HCL [Concomitant]
     Indication: PAIN MANAGEMENT
     Dosage: 10 MG, UNK
     Route: 048
     Dates: start: 20120329, end: 20120514
  4. ALL OTHER THERAPEUTIC PRODUCTS [Concomitant]
     Indication: CONSTIPATION
     Dosage: 1500 MG, UNK
     Route: 048
     Dates: start: 20120329, end: 20120514
  5. ALL OTHER THERAPEUTIC PRODUCTS [Concomitant]
     Indication: GASTROINTESTINAL DISORDER
     Dosage: 90 MG, UNK
     Route: 048
     Dates: start: 20120329, end: 20120514
  6. HYDROMORPHONE HCL [Concomitant]
     Indication: PAIN MANAGEMENT
     Dosage: 2 MG, PRN
     Route: 048
     Dates: start: 20120510, end: 20120514
  7. LYRICA [Concomitant]
     Dosage: 75 MG, UNK
     Route: 048
     Dates: start: 20120405, end: 20120514
  8. APETROLL [Concomitant]
     Indication: DECREASED APPETITE
     Dosage: 800 MG, UNK
     Route: 048
     Dates: start: 20120329, end: 20120514
  9. ALL OTHER THERAPEUTIC PRODUCTS [Concomitant]
     Dosage: 100 MG
     Route: 042
     Dates: start: 20120510, end: 20120510
  10. HYCODONE [Concomitant]
     Indication: PAIN MANAGEMENT
  11. EXALGO [Suspect]
     Indication: PAIN MANAGEMENT
     Dosage: 8 MG, QD
     Route: 048
     Dates: start: 20120510, end: 20120514
  12. DEXAMETHASONE [Concomitant]
     Indication: PREMEDICATION
     Dosage: 10 MG, UNK
     Route: 042
     Dates: start: 20120510, end: 20120510
  13. ALL OTHER THERAPEUTIC PRODUCTS [Concomitant]
     Indication: PAIN MANAGEMENT
     Dosage: 75 MG, PRN
     Route: 048
     Dates: start: 20120329, end: 20120509
  14. URANTAC [Concomitant]
     Indication: PREMEDICATION
     Dosage: UNK
  15. ALL OTHER THERAPEUTIC PRODUCTS [Concomitant]
     Indication: PREMEDICATION
     Dosage: 60 MG
     Dates: start: 20120510, end: 20120510
  16. MONOTAXEL [Concomitant]
     Indication: PREMEDICATION
  17. PARAMACET [Concomitant]
     Indication: PAIN MANAGEMENT
     Dosage: 2 DOSES
     Route: 048
     Dates: start: 20120329, end: 20120425
  18. LYRICA [Concomitant]
     Indication: PAIN MANAGEMENT
     Dosage: 150 MG, UNK
     Route: 048
     Dates: start: 20120329, end: 20120404
  19. CHLORPHENIRAMINE MALEATE [Concomitant]
     Indication: PREMEDICATION
     Dosage: 4 MG, UNK
     Route: 042
     Dates: start: 20120510, end: 20120510
  20. MG-TNA [Concomitant]
     Indication: SUPPLEMENTATION THERAPY

REACTIONS (7)
  - SYNCOPE [None]
  - COLITIS [None]
  - PYREXIA [None]
  - CHILLS [None]
  - HYPOVOLAEMIC SHOCK [None]
  - RENAL FAILURE ACUTE [None]
  - DIARRHOEA [None]
